FAERS Safety Report 14649090 (Version 1)
Quarter: 2018Q1

REPORT INFORMATION
  Report Type: Spontaneous
  Country: ES (occurrence: ES)
  Receive Date: 20180316
  Receipt Date: 20180316
  Transmission Date: 20180509
  Serious: Yes (Hospitalization)
  Sender: FDA-Public Use
  Company Number: ES-TEVA-2018-ES-869314

PATIENT
  Age: 54 Year
  Sex: Male

DRUGS (6)
  1. TROMALYT 150, HARD CAPSULES OF PROLONGED RELEASE, 28 CAPSULES [Concomitant]
     Indication: ISCHAEMIC CARDIOMYOPATHY
     Route: 048
  2. FUROSEMIDE. [Suspect]
     Active Substance: FUROSEMIDE
     Indication: CARDIAC FAILURE CONGESTIVE
     Route: 048
  3. ATOZET 10 MG/20 MG FILM-COATED TABLETS, 30 TABLETS [Concomitant]
     Indication: DYSLIPIDAEMIA
     Route: 048
  4. ENANTYUM 12,5 MG TABLETS, 20 TABLETS [Interacting]
     Active Substance: DEXKETOPROFEN TROMETAMOL
     Route: 048
  5. EPLERENONA (2924A) [Interacting]
     Active Substance: EPLERENONE
     Indication: CARDIAC FAILURE CONGESTIVE
     Route: 048
  6. ENTRESTO [Interacting]
     Active Substance: SACUBITRIL\VALSARTAN
     Indication: ESSENTIAL HYPERTENSION
     Route: 048

REACTIONS (3)
  - Acute kidney injury [Recovered/Resolved]
  - Hyperkalaemia [Recovered/Resolved]
  - Drug interaction [Unknown]
